FAERS Safety Report 7104857-5 (Version None)
Quarter: 2010Q4

REPORT INFORMATION
  Report Type: 
  Country: None (occurrence: None)
  Receive Date: 20101116
  Receipt Date: 20101109
  Transmission Date: 20110411
  Serious: Yes (Other)
  Sender: FDA-Public Use
  Company Number: BR-BAYER-201020817LA

PATIENT
  Age: 36 Year
  Sex: Female
  Weight: 84 kg

DRUGS (1)
  1. MIRENA [Suspect]
     Indication: MENSTRUAL DISORDER
     Dosage: FREQUENCY: CONTINUOUS
     Route: 015
     Dates: start: 20090601

REACTIONS (2)
  - AMENORRHOEA [None]
  - BREAST CANCER FEMALE [None]
